FAERS Safety Report 6842919-8 (Version None)
Quarter: 2010Q3

REPORT INFORMATION
  Report Type: 
  Country: None (occurrence: None)
  Receive Date: 20100714
  Receipt Date: 20070808
  Transmission Date: 20110219
  Serious: No
  Sender: FDA-Public Use
  Company Number: US-PFIZER INC-2007066780

PATIENT
  Sex: Female
  Weight: 69.9 kg

DRUGS (13)
  1. CHANTIX [Suspect]
     Indication: SMOKING CESSATION THERAPY
     Dates: start: 20070701, end: 20070701
  2. LISINOPRIL [Concomitant]
     Indication: BLOOD PRESSURE ABNORMAL
  3. ZOCOR [Concomitant]
     Indication: BLOOD CHOLESTEROL ABNORMAL
  4. ACCOLATE [Concomitant]
     Indication: ASTHMA
  5. ALBUTEROL [Concomitant]
  6. PROAIR HFA [Concomitant]
     Route: 055
  7. SPIRIVA [Concomitant]
  8. EVISTA [Concomitant]
  9. CENTRUM SILVER [Concomitant]
  10. CALCIUM WITH VITAMIN D [Concomitant]
  11. FISH OIL [Concomitant]
  12. FUROSEMIDE [Concomitant]
  13. ACETYLSALICYLIC ACID [Concomitant]

REACTIONS (3)
  - ABDOMINAL DISCOMFORT [None]
  - ABNORMAL DREAMS [None]
  - HYPERHIDROSIS [None]
